FAERS Safety Report 8246660-9 (Version None)
Quarter: 2012Q1

REPORT INFORMATION
  Report Type: 
  Country: None (occurrence: None)
  Receive Date: 20120330
  Receipt Date: 20120326
  Transmission Date: 20120608
  Serious: Yes (Life-Threatening)
  Sender: FDA-Public Use
  Company Number: CA-BAYER-2012-015519

PATIENT
  Age: 64 Year
  Sex: Female
  Weight: 90.703 kg

DRUGS (1)
  1. CIPRO XR [Suspect]
     Dosage: 1000 MG, QD
     Route: 048

REACTIONS (69)
  - CARPAL TUNNEL SYNDROME [None]
  - CONJUNCTIVAL OEDEMA [None]
  - DEAFNESS [None]
  - DEPRESSION [None]
  - HYPERTENSION [None]
  - MYALGIA [None]
  - NECK PAIN [None]
  - TENDON RUPTURE [None]
  - ABDOMINAL PAIN [None]
  - BLOOD POTASSIUM INCREASED [None]
  - GASTROINTESTINAL HAEMORRHAGE [None]
  - HAEMOLYTIC ANAEMIA [None]
  - IRRITABLE BOWEL SYNDROME [None]
  - NASAL DRYNESS [None]
  - PYREXIA [None]
  - ARTHRALGIA [None]
  - CYSTITIS HAEMORRHAGIC [None]
  - FALL [None]
  - HEADACHE [None]
  - MALAISE [None]
  - MUSCLE TIGHTNESS [None]
  - OEDEMA PERIPHERAL [None]
  - PALPITATIONS [None]
  - SKIN DISORDER [None]
  - SLEEP APNOEA SYNDROME [None]
  - ARRHYTHMIA [None]
  - BLOOD CHOLESTEROL INCREASED [None]
  - DIVERTICULITIS [None]
  - DIZZINESS [None]
  - FLATULENCE [None]
  - SENSATION OF PRESSURE [None]
  - TINNITUS [None]
  - URETHRAL HAEMORRHAGE [None]
  - ASTHENIA [None]
  - BACK PAIN [None]
  - BLOOD TRIGLYCERIDES INCREASED [None]
  - COLOUR BLINDNESS ACQUIRED [None]
  - CONSTIPATION [None]
  - DRUG INEFFECTIVE [None]
  - JOINT STIFFNESS [None]
  - LETHARGY [None]
  - POLLAKIURIA [None]
  - RESPIRATORY DISTRESS [None]
  - TACHYCARDIA [None]
  - VISION BLURRED [None]
  - VISUAL ACUITY REDUCED [None]
  - ABASIA [None]
  - CHILLS [None]
  - DRY EYE [None]
  - FACE OEDEMA [None]
  - FATIGUE [None]
  - FIBROMYALGIA [None]
  - HYPOAESTHESIA [None]
  - IMPAIRED HEALING [None]
  - INSOMNIA [None]
  - PHOTOSENSITIVITY REACTION [None]
  - TREMOR [None]
  - ANGIOEDEMA [None]
  - CHEST PAIN [None]
  - DRY MOUTH [None]
  - SOMNOLENCE [None]
  - TENDONITIS [None]
  - TOXICITY TO VARIOUS AGENTS [None]
  - VOMITING [None]
  - DYSGEUSIA [None]
  - FLUSHING [None]
  - PARAESTHESIA [None]
  - PRURITUS [None]
  - TARSAL TUNNEL SYNDROME [None]
